FAERS Safety Report 8556088-X (Version None)
Quarter: 2012Q3

REPORT INFORMATION
  Report Type: 
  Country: None (occurrence: None)
  Receive Date: 20120719
  Receipt Date: 20120705
  Transmission Date: 20120928
  Serious: Yes (Hospitalization, Other)
  Sender: FDA-Public Use
  Company Number: 2012P1048335

PATIENT
  Age: 83 Year
  Sex: Female
  Weight: 71.6683 kg

DRUGS (14)
  1. BACLOFEN [Concomitant]
  2. MIRTAZAPINE [Concomitant]
  3. EZETIMIBE [Concomitant]
  4. POTASSIUM [Concomitant]
  5. ADVAIR DISKUS 100/50 [Concomitant]
  6. ALENDRONATE SODIUM [Concomitant]
  7. DOCUSATE SODIUM [Concomitant]
  8. WARFARIN SODIUM [Suspect]
     Indication: ANTICOAGULANT THERAPY
     Dosage: PO
     Route: 048
     Dates: start: 20120501, end: 20120601
  9. OXYBUTYNIN [Concomitant]
  10. WARFARIN SODIUM [Suspect]
     Indication: ANTICOAGULANT THERAPY
     Dosage: PO
     Route: 048
     Dates: start: 20120501, end: 20120601
  11. PRIMIDONE [Concomitant]
  12. HYDROMORPHONE HCL [Concomitant]
  13. LACTULOSE [Concomitant]
  14. ACETAMINOPHEN [Concomitant]

REACTIONS (3)
  - INTERNATIONAL NORMALISED RATIO INCREASED [None]
  - RETROPERITONEAL HAEMORRHAGE [None]
  - DRUG INTERACTION [None]
